FAERS Safety Report 8542134-6 (Version None)
Quarter: 2012Q3

REPORT INFORMATION
  Report Type: 
  Country: None (occurrence: None)
  Receive Date: 20120726
  Receipt Date: 20111108
  Transmission Date: 20120928
  Serious: No
  Sender: FDA-Public Use
  Company Number: US-ASTRAZENECA-2011SE63388

PATIENT
  Age: 24 Year
  Sex: Male
  Weight: 65.3 kg

DRUGS (4)
  1. REYATAZ [Concomitant]
  2. NORVIR [Concomitant]
  3. SEROQUEL [Suspect]
     Indication: BIPOLAR II DISORDER
     Route: 048
  4. LITHIUM CARBONATE [Concomitant]

REACTIONS (2)
  - SLEEP DISORDER DUE TO GENERAL MEDICAL CONDITION, INSOMNIA TYPE [None]
  - AKATHISIA [None]
